FAERS Safety Report 6047462-4 (Version None)
Quarter: 2009Q1

REPORT INFORMATION
  Report Type: 
  Country: None (occurrence: None)
  Receive Date: 20090122
  Receipt Date: 20090115
  Transmission Date: 20090719
  Serious: Yes (Death)
  Sender: FDA-Public Use
  Company Number: US-GILEAD-2009-0019709

PATIENT
  Sex: Female

DRUGS (17)
  1. LETAIRIS [Suspect]
     Indication: PULMONARY ARTERIAL HYPERTENSION
     Route: 048
     Dates: start: 20081104
  2. METFORMIN [Concomitant]
  3. GEMFIBROZIL [Concomitant]
  4. PLAQUENIL [Concomitant]
  5. GLIPIZIDE [Concomitant]
  6. LISINOPRIL [Concomitant]
  7. PRILOSEC [Concomitant]
  8. LEXAPRO [Concomitant]
  9. FOLIC ACID [Concomitant]
  10. OXAPROZIN [Concomitant]
  11. SPIRONOLACTONE [Concomitant]
  12. FUROSEMIDE [Concomitant]
  13. METHOTREXATE [Concomitant]
  14. ASPIRIN [Concomitant]
  15. ALPRAZOLAM [Concomitant]
  16. LEFLUNOMIDE [Concomitant]
  17. SULFADIAZINE [Concomitant]

REACTIONS (4)
  - CARDIAC FAILURE [None]
  - HAEMOGLOBIN DECREASED [None]
  - PULMONARY ARTERIAL HYPERTENSION [None]
  - RENAL FAILURE [None]
